FAERS Safety Report 14057429 (Version 2)
Quarter: 2017Q4

REPORT INFORMATION
  Report Type: Spontaneous
  Country: JP (occurrence: JP)
  Receive Date: 20171006
  Receipt Date: 20171012
  Transmission Date: 20180321
  Serious: Yes (Other)
  Sender: FDA-Public Use
  Company Number: JP-BAYER-2017-187209

PATIENT
  Age: 67 Year
  Sex: Female

DRUGS (3)
  1. RIVAROXABAN [Suspect]
     Active Substance: RIVAROXABAN
     Route: 048
  2. STIVARGA [Suspect]
     Active Substance: REGORAFENIB
     Indication: HEPATOCELLULAR CARCINOMA
     Dosage: 60 MG, BID
     Route: 048
     Dates: start: 20170913
  3. STIVARGA [Suspect]
     Active Substance: REGORAFENIB
     Indication: HEPATOCELLULAR CARCINOMA
     Dosage: UNK
     Route: 048
     Dates: start: 20171010

REACTIONS (4)
  - Renal disorder [None]
  - Haemorrhagic diathesis [None]
  - Palmar-plantar erythrodysaesthesia syndrome [None]
  - Weight decreased [None]

NARRATIVE: CASE EVENT DATE: 20170915
